FAERS Safety Report 18947383 (Version 2)
Quarter: 2021Q1

REPORT INFORMATION
  Report Type: Report from Study
  Country: CA (occurrence: CA)
  Receive Date: 20210226
  Receipt Date: 20210330
  Transmission Date: 20210420
  Serious: Yes (Other)
  Sender: FDA-Public Use
  Company Number: CA-ALLERGAN-2017753US

PATIENT
  Sex: Female
  Weight: 64.85 kg

DRUGS (7)
  1. BLINDED BOTULINUM TOXIN TYPE A ? NON?HSA [Suspect]
     Active Substance: BOTULINUM TOXIN TYPE A
     Dosage: UNK
     Dates: start: 20191016, end: 20191016
  2. BLINDED BOTULINUM TOXIN TYPE A ? NON?HSA [Suspect]
     Active Substance: BOTULINUM TOXIN TYPE A
     Dosage: UNK
     Dates: start: 20190423, end: 20190423
  3. BLINDED BOTULINUM TOXIN TYPE A ? NON?HSA [Suspect]
     Active Substance: BOTULINUM TOXIN TYPE A
     Indication: SKIN WRINKLING
     Dosage: UNK
     Dates: start: 20200224, end: 20200224
  4. PLACEBO [Suspect]
     Active Substance: UNSPECIFIED INGREDIENT
     Dosage: UNK
     Dates: start: 20190423, end: 20190423
  5. LOLO [Suspect]
     Active Substance: ETHINYL ESTRADIOL\NORETHINDRONE ACETATE
     Indication: CONTRACEPTION
     Dosage: 1 DF (1MG/10MCG), QD
     Route: 048
     Dates: start: 20190411, end: 20200331
  6. PLACEBO [Suspect]
     Active Substance: UNSPECIFIED INGREDIENT
     Indication: SKIN WRINKLING
     Dosage: UNK
     Dates: start: 20200224, end: 20200224
  7. PLACEBO [Suspect]
     Active Substance: UNSPECIFIED INGREDIENT
     Dosage: UNK
     Dates: start: 20191016, end: 20191016

REACTIONS (3)
  - Drug ineffective [Unknown]
  - Abortion induced [Recovered/Resolved]
  - Pregnancy [Unknown]

NARRATIVE: CASE EVENT DATE: 20200208
